FAERS Safety Report 4313695-8 (Version None)
Quarter: 2004Q1

REPORT INFORMATION
  Report Type: 
  Country: None (occurrence: None)
  Receive Date: 20040305
  Receipt Date: 20031223
  Transmission Date: 20041129
  Serious: Yes (Other)
  Sender: FDA-Public Use
  Company Number: USA-2003-0008877

PATIENT
  Age: 74 Year
  Sex: Female
  Weight: 70.3 kg

DRUGS (9)
  1. CHIRCAINE   (LEVOBUPIVACAINE HYDROCHLORIDE) [Suspect]
     Indication: NERVE BLOCK
     Dosage: 35 ML, SINGLE
     Dates: start: 20030717, end: 20030717
  2. EPINEPHRINE [Suspect]
     Indication: NERVE BLOCK
     Dosage: UNK MG, SINGLE
     Dates: start: 20030717, end: 20030717
  3. MEPIVACAINE HCL [Suspect]
     Indication: NERVE BLOCK
     Dosage: UNK ML, SINGLE
     Dates: start: 20030717, end: 20030717
  4. FENTANYL [Suspect]
     Indication: SEDATION
     Dosage: 100 MCG, SINGLE, INTRAVENOUS
     Route: 042
  5. VERSED [Suspect]
     Indication: SEDATION
     Dosage: 6 MG, SINGLE, INTRAVENOUS
     Route: 042
  6. INDERAL [Concomitant]
  7. ADALAT [Concomitant]
  8. FUROSEMIDE [Concomitant]
  9. PREVACID [Concomitant]

REACTIONS (9)
  - APNOEA [None]
  - BRADYCARDIA [None]
  - DISORIENTATION [None]
  - FACIAL PALSY [None]
  - GRAND MAL CONVULSION [None]
  - HYPOTENSION [None]
  - MUSCULAR WEAKNESS [None]
  - NEUROLOGICAL SYMPTOM [None]
  - PUPILS UNEQUAL [None]
